FAERS Safety Report 8383512-8 (Version None)
Quarter: 2012Q2

REPORT INFORMATION
  Report Type: 
  Country: None (occurrence: None)
  Receive Date: 20120524
  Receipt Date: 20120515
  Transmission Date: 20120825
  Serious: Yes (Other)
  Sender: FDA-Public Use
  Company Number: US-ASTRAZENECA-2012SE19899

PATIENT
  Sex: Female

DRUGS (2)
  1. NEXIUM [Suspect]
     Indication: GASTROOESOPHAGEAL REFLUX DISEASE
     Route: 048
  2. NEXIUM [Suspect]
     Route: 048

REACTIONS (5)
  - MULTIPLE MYELOMA [None]
  - NEOPLASM MALIGNANT [None]
  - GASTROOESOPHAGEAL REFLUX DISEASE [None]
  - OFF LABEL USE [None]
  - ABDOMINAL DISCOMFORT [None]
